FAERS Safety Report 21352965 (Version 1)
Quarter: 2022Q3

REPORT INFORMATION
  Report Type: Spontaneous
  Country: US (occurrence: US)
  Receive Date: 20220920
  Receipt Date: 20220920
  Transmission Date: 20221026
  Serious: No
  Sender: FDA-Public Use
  Company Number: US-SUN PHARMACEUTICAL INDUSTRIES LTD-2022R1-340746

PATIENT
  Sex: Female

DRUGS (1)
  1. WINLEVI [Suspect]
     Active Substance: CLASCOTERONE
     Indication: Product used for unknown indication
     Dosage: UNK
     Route: 061

REACTIONS (7)
  - Expired product administered [Unknown]
  - Product physical consistency issue [Unknown]
  - Scratch [Unknown]
  - Product use complaint [Unknown]
  - Pain [Unknown]
  - Product deposit [Unknown]
  - Product quality issue [Unknown]
